FAERS Safety Report 8022980-8 (Version None)
Quarter: 2012Q1

REPORT INFORMATION
  Report Type: 
  Country: None (occurrence: None)
  Receive Date: 20120104
  Receipt Date: 20111223
  Transmission Date: 20120608
  Serious: Yes (Hospitalization)
  Sender: FDA-Public Use
  Company Number: US-CELGENEUS-163-20785-11123159

PATIENT
  Age: 86 Year
  Sex: Female
  Weight: 61.4 kg

DRUGS (7)
  1. THALOMID [Suspect]
     Dosage: 100 MILLIGRAM
     Route: 048
     Dates: start: 20100816, end: 20100905
  2. ASPIRIN [Concomitant]
     Dosage: 325 MILLIGRAM
     Route: 048
     Dates: start: 20100719
  3. MELPHALAN HYDROCHLORIDE [Suspect]
     Indication: MULTIPLE MYELOMA
     Dosage: 9 MILLIGRAM/SQ. METER
     Route: 048
     Dates: start: 20100719
  4. MELPHALAN HYDROCHLORIDE [Suspect]
     Dosage: 9 MILLIGRAM/SQ. METER
     Route: 048
     Dates: start: 20100816, end: 20110819
  5. THALOMID [Suspect]
     Indication: MULTIPLE MYELOMA
     Dosage: 100 MILLIGRAM
     Route: 048
     Dates: start: 20100719
  6. PREDNISONE TAB [Suspect]
     Indication: MULTIPLE MYELOMA
     Dosage: 100 MILLIGRAM
     Route: 048
     Dates: start: 20100719
  7. PREDNISONE TAB [Suspect]
     Dosage: 100 MILLIGRAM
     Route: 048
     Dates: start: 20100816, end: 20100819

REACTIONS (2)
  - RENAL FAILURE ACUTE [None]
  - GASTRITIS [None]
